FAERS Safety Report 16757859 (Version 9)
Quarter: 2024Q2

REPORT INFORMATION
  Report Type: Other
  Country: CA (occurrence: None)
  Receive Date: 20190830
  Receipt Date: 20240508
  Transmission Date: 20240716
  Serious: Yes (Hospitalization, Other)
  Sender: FDA-Public Use
  Company Number: CA-ROCHE-1553564

PATIENT
  Age: 48 Year
  Sex: Female
  Weight: 56.7 kg

DRUGS (21)
  1. RITUXAN [Suspect]
     Active Substance: RITUXIMAB
     Indication: Scleroderma
     Dosage: LAST DOSE OF RITUXIMAB ON: 23/OCT/2014
     Route: 041
     Dates: start: 20141008
  2. RITUXAN [Suspect]
     Active Substance: RITUXIMAB
     Indication: Vasculitis
  3. CELLCEPT [Suspect]
     Active Substance: MYCOPHENOLATE MOFETIL
     Indication: Product used for unknown indication
     Route: 065
  4. SULFATRIM [Concomitant]
     Active Substance: SULFAMETHOXAZOLE\TRIMETHOPRIM
  5. NIFEDIPINE [Concomitant]
     Active Substance: NIFEDIPINE
     Dates: start: 20150303
  6. PREDNISONE [Concomitant]
     Active Substance: PREDNISONE
  7. PANTOPRAZOLE [Concomitant]
     Active Substance: PANTOPRAZOLE
  8. TYLENOL [Concomitant]
     Active Substance: ACETAMINOPHEN
     Indication: Premedication
     Route: 048
     Dates: start: 20141008
  9. BENADRYL [Concomitant]
     Active Substance: DIPHENHYDRAMINE HYDROCHLORIDE
     Indication: Premedication
     Route: 048
     Dates: start: 20141008
  10. METHYLPREDNISOLONE [Concomitant]
     Active Substance: METHYLPREDNISOLONE
     Indication: Premedication
     Route: 042
     Dates: start: 20141008
  11. OXYGEN [Concomitant]
     Active Substance: OXYGEN
  12. CALTRATE [Concomitant]
     Active Substance: CALCIUM CARBONATE
  13. FOSAVANCE [Concomitant]
     Active Substance: ALENDRONATE SODIUM\CHOLECALCIFEROL
  14. PERINDOPRIL [Concomitant]
     Active Substance: PERINDOPRIL
     Dates: start: 201502
  15. AMLODIPINE [Concomitant]
     Active Substance: AMLODIPINE BESYLATE
  16. HYDROCHLOROTHIAZIDE [Concomitant]
     Active Substance: HYDROCHLOROTHIAZIDE
  17. PERINDOPRIL [Concomitant]
     Active Substance: PERINDOPRIL
  18. SOLU-MEDROL [Concomitant]
     Active Substance: METHYLPREDNISOLONE SODIUM SUCCINATE
     Indication: Premedication
     Route: 042
     Dates: start: 20141008
  19. OMEGA 3 [Concomitant]
     Active Substance: CAPSAICIN
  20. VITAMIN C [Concomitant]
     Active Substance: ASCORBIC ACID
  21. ACETAMINOPHEN [Concomitant]
     Active Substance: ACETAMINOPHEN
     Indication: Premedication
     Route: 048
     Dates: start: 20141008

REACTIONS (16)
  - Pneumonia [Recovered/Resolved]
  - Off label use [Unknown]
  - Drug ineffective [Unknown]
  - Anxiety [Not Recovered/Not Resolved]
  - Arthritis infective [Unknown]
  - Blood pressure increased [Unknown]
  - Heart rate increased [Unknown]
  - Blood pressure increased [Unknown]
  - Respiratory rate increased [Unknown]
  - Oxygen saturation decreased [Unknown]
  - Skin ulcer [Recovering/Resolving]
  - Rheumatoid arthritis [Unknown]
  - Blood pressure fluctuation [Unknown]
  - Blood pressure diastolic abnormal [Unknown]
  - Blood pressure diastolic decreased [Unknown]
  - Blood pressure systolic increased [Unknown]

NARRATIVE: CASE EVENT DATE: 20150315
